FAERS Safety Report 7590285-5 (Version None)
Quarter: 2011Q3

REPORT INFORMATION
  Report Type: 
  Country: None (occurrence: None)
  Receive Date: 20110705
  Receipt Date: 20091011
  Transmission Date: 20111222
  Serious: Yes (Other)
  Sender: FDA-Public Use
  Company Number: US-BAYER-200936251NA

PATIENT
  Age: 51 Year
  Sex: Female
  Weight: 86 kg

DRUGS (22)
  1. FLOVENT [Concomitant]
     Dosage: INHALER
     Route: 048
  2. PAVULON [Concomitant]
     Dosage: UNK
     Dates: start: 20050616
  3. INSULIN [INSULIN] [Concomitant]
     Dosage: 10 U, UNK
     Route: 058
  4. NITROGLYCERIN [Concomitant]
     Dosage: UNK, DRIP
     Dates: start: 20050616
  5. ANCEF [Concomitant]
     Dosage: UNK
     Dates: start: 20050616
  6. METOPROLOL TARTRATE [Concomitant]
     Dosage: 25 MG, UNK
     Route: 048
  7. EPINEPHRINE [Concomitant]
     Dosage: UNK
     Dates: start: 20050616
  8. TRASYLOL [Suspect]
     Indication: CORONARY ARTERY BYPASS
     Dosage: 200 ML, PRIME
     Route: 042
     Dates: start: 20050616, end: 20050616
  9. TRASYLOL [Suspect]
     Dosage: 50 ML, Q1HR
     Route: 042
     Dates: start: 20050616, end: 20050616
  10. TRASYLOL [Suspect]
     Dosage: 200 ML, LOADING DOSE
     Route: 042
     Dates: start: 20050616, end: 20050616
  11. LIPITOR [Concomitant]
     Dosage: 80 MG, UNK
     Route: 048
  12. SEREVENT [Concomitant]
     Dosage: INHALER
     Route: 048
  13. AMIODARONE HCL [Concomitant]
     Dosage: UNK
     Dates: start: 20050616
  14. RED BLOOD CELLS [Concomitant]
     Dosage: 1 U, UNK
     Route: 042
     Dates: start: 20050616
  15. COZAAR [Concomitant]
     Dosage: 50 MG, UNK
     Route: 048
  16. NOVOLOG [Concomitant]
     Route: 058
  17. VERSED [Concomitant]
     Dosage: UNK
     Dates: start: 20050616
  18. OMNIPAQUE 140 [Concomitant]
     Dosage: 105 ML, UNK
     Dates: start: 20050610
  19. DILTIAZEM CD [Concomitant]
     Dosage: 180 MG, UNK
     Route: 048
  20. PROTONIX [Concomitant]
     Dosage: 40 MG, UNK
     Route: 048
  21. SPIRIVA [Concomitant]
     Dosage: 18 MCG, INHALER
     Route: 048
  22. XOPENEX [Concomitant]
     Dosage: 0.63 MG, UNK, INHALER
     Route: 048

REACTIONS (8)
  - PAIN [None]
  - CEREBROVASCULAR ACCIDENT [None]
  - ANXIETY [None]
  - UNEVALUABLE EVENT [None]
  - INJURY [None]
  - DEPRESSION [None]
  - ANHEDONIA [None]
  - FEAR [None]
